FAERS Safety Report 4273723-5 (Version None)
Quarter: 2004Q1

REPORT INFORMATION
  Report Type: 
  Country: None (occurrence: None)
  Receive Date: 20040116
  Receipt Date: 20040116
  Transmission Date: 20041129
  Serious: Yes (Hospitalization, Other)
  Sender: FDA-Public Use
  Company Number: None

PATIENT
  Age: 43 Year
  Sex: Female

DRUGS (4)
  1. VOSPIRE ER 4MG TAB ODYSSEY [Suspect]
     Indication: ASTHMA
     Dosage: 1 PO BID
     Route: 048
     Dates: start: 20031226
  2. ZYRTEC [Concomitant]
  3. ADVAIR DISKUS 250/50 [Concomitant]
  4. SINGULAIR [Concomitant]

REACTIONS (2)
  - HEART RATE [None]
  - PAIN IN EXTREMITY [None]
